FAERS Safety Report 5445678-9 (Version None)
Quarter: 2007Q3

REPORT INFORMATION
  Report Type: 
  Country: None (occurrence: None)
  Receive Date: 20070904
  Receipt Date: 20070821
  Transmission Date: 20080115
  Serious: Yes (Other)
  Sender: FDA-Public Use
  Company Number: 2007329339

PATIENT
  Age: 70 Year
  Sex: Female
  Weight: 65.318 kg

DRUGS (4)
  1. LISTERINE WHITENING PRE-BRUSH RINSE (NO ACTIVE INGREDIENT) [Suspect]
     Indication: DENTAL CARE
     Dosage: CAPFUL ONCE A DAY, ORAL
     Route: 048
     Dates: start: 20070601, end: 20070601
  2. LISINOPRIL [Concomitant]
  3. SYNTHROID [Concomitant]
  4. ZOCOR [Concomitant]

REACTIONS (2)
  - GINGIVAL PAIN [None]
  - ORAL MUCOSAL EXFOLIATION [None]
